FAERS Safety Report 24019925 (Version 1)
Quarter: 2024Q2

REPORT INFORMATION
  Report Type: Spontaneous
  Country: US (occurrence: US)
  Receive Date: 20240627
  Receipt Date: 20240627
  Transmission Date: 20240716
  Serious: Yes (Life-Threatening, Hospitalization, Other)
  Sender: FDA-Public Use
  Company Number: None

PATIENT
  Age: 48 Year
  Sex: Female

DRUGS (2)
  1. GEMCITABINE [Suspect]
     Active Substance: GEMCITABINE
     Indication: Metastases to peritoneum
     Dosage: RECEIVED A SECOND DOSE ONLY SIX DAYS BEFORE COMING TO THE ED DUE TO INCREASING FATIGUE AND WEAKNESS
  2. CARBOPLATIN [Concomitant]
     Active Substance: CARBOPLATIN
     Indication: Metastases to peritoneum
     Dosage: RECEIVED A SECOND DOSE ONLY SIX DAYS BEFORE COMING TO THE ED

REACTIONS (2)
  - Acute respiratory failure [Recovered/Resolved]
  - Pulmonary alveolar haemorrhage [Recovered/Resolved]
